FAERS Safety Report 5585468-X (Version None)
Quarter: 2008Q1

REPORT INFORMATION
  Report Type: 
  Country: None (occurrence: None)
  Receive Date: 20080109
  Receipt Date: 20080104
  Transmission Date: 20080703
  Serious: Yes (Life-Threatening, Hospitalization)
  Sender: FDA-Public Use
  Company Number: MX-WYE-H01962308

PATIENT
  Age: 32 Year
  Sex: Male
  Weight: 72 kg

DRUGS (1)
  1. TYGACIL [Suspect]
     Indication: PROPHYLAXIS
     Dosage: ONE 700 ML DOSE
     Route: 042
     Dates: start: 20080104, end: 20080104

REACTIONS (2)
  - ACUTE PULMONARY OEDEMA [None]
  - CARDIAC ARREST [None]
